FAERS Safety Report 9375412 (Version 1)
Quarter: 2013Q2

REPORT INFORMATION
  Report Type: Other
  Country: GB (occurrence: GB)
  Receive Date: 20130628
  Receipt Date: 20130628
  Transmission Date: 20140414
  Serious: Yes (Disabling)
  Sender: FDA-Public Use
  Company Number: GB-ACTAVIS-2013-11584

PATIENT
  Sex: 0

DRUGS (2)
  1. IPRATROPIUM BROMIDE (UNKNOWN) [Suspect]
     Indication: CHRONIC OBSTRUCTIVE PULMONARY DISEASE
     Dosage: 500 MCG, QID
     Route: 045
     Dates: start: 20121224
  2. SALBUTAMOL (UNKNOWN) [Suspect]
     Indication: CHRONIC OBSTRUCTIVE PULMONARY DISEASE
     Dosage: 2.5 MG, QID
     Route: 045
     Dates: start: 20121224

REACTIONS (2)
  - Angle closure glaucoma [Unknown]
  - Eye pain [Unknown]
